FAERS Safety Report 13032505 (Version 1)
Quarter: 2016Q4

REPORT INFORMATION
  Report Type: Spontaneous
  Country: US (occurrence: US)
  Receive Date: 20161215
  Receipt Date: 20161215
  Transmission Date: 20170207
  Serious: Yes (Hospitalization)
  Sender: FDA-Public Use
  Company Number: US-ALLERGAN-1668503US

PATIENT
  Age: 19 Year
  Sex: Female

DRUGS (1)
  1. VIBERZI [Suspect]
     Active Substance: ELUXADOLINE
     Indication: IRRITABLE BOWEL SYNDROME
     Dosage: 100 MG, QD
     Route: 065
     Dates: start: 201608

REACTIONS (3)
  - Pancreatitis [Unknown]
  - Inappropriate schedule of drug administration [Unknown]
  - Liver function test increased [Unknown]
